FAERS Safety Report 11081140 (Version 1)
Quarter: 2015Q2

REPORT INFORMATION
  Report Type: Spontaneous
  Country: US (occurrence: None)
  Receive Date: 20150424
  Receipt Date: 20150424
  Transmission Date: 20150821
  Serious: Yes (Other)
  Sender: FDA-Public Use
  Company Number: FK201405483

PATIENT
  Sex: Female

DRUGS (1)
  1. METHOTREXATE INJECTION, USP [Suspect]
     Active Substance: METHOTREXATE
     Indication: RHEUMATOID ARTHRITIS
     Dates: start: 201307

REACTIONS (3)
  - Vomiting [None]
  - Nausea [None]
  - Aphthous stomatitis [None]
